FAERS Safety Report 24211769 (Version 4)
Quarter: 2025Q3

REPORT INFORMATION
  Report Type: Report from Study
  Country: JP (occurrence: JP)
  Receive Date: 20240814
  Receipt Date: 20250909
  Transmission Date: 20251021
  Serious: No
  Sender: EISAI
  Company Number: JP-Eisai-202405857_LEQ_P_1

PATIENT
  Age: 71 Year
  Sex: Female
  Weight: 62 kg

DRUGS (3)
  1. LEQEMBI [Suspect]
     Active Substance: LECANEMAB-IRMB
     Indication: Cognitive disorder
     Route: 042
     Dates: start: 20240613, end: 20241212
  2. HERBALS [Concomitant]
     Active Substance: HERBALS
     Indication: Cognitive disorder
     Route: 048
  3. REXULTI [Concomitant]
     Active Substance: BREXPIPRAZOLE
     Indication: Cognitive disorder
     Route: 048

REACTIONS (1)
  - Amyloid related imaging abnormality-oedema/effusion [Not Recovered/Not Resolved]

NARRATIVE: CASE EVENT DATE: 20240801
